FAERS Safety Report 5822551-5 (Version None)
Quarter: 2008Q3

REPORT INFORMATION
  Report Type: 
  Country: None (occurrence: None)
  Receive Date: 20080725
  Receipt Date: 20080103
  Transmission Date: 20090109
  Serious: No
  Sender: FDA-Public Use
  Company Number: US-AMGEN-KDL259230

PATIENT
  Sex: Female
  Weight: 84 kg

DRUGS (5)
  1. PROCRIT [Suspect]
     Indication: RENAL FAILURE CHRONIC
     Dates: start: 20061001
  2. PROCRIT [Suspect]
     Dates: start: 20061001
  3. COZAAR [Concomitant]
  4. FELODIPINE [Concomitant]
     Dates: start: 20070101
  5. PREDNISONE TAB [Concomitant]

REACTIONS (2)
  - BLOOD CREATININE INCREASED [None]
  - INSOMNIA [None]
